FAERS Safety Report 18323877 (Version 2)
Quarter: 2020Q4

REPORT INFORMATION
  Report Type: Spontaneous
  Country: JP (occurrence: JP)
  Receive Date: 20200929
  Receipt Date: 20201015
  Transmission Date: 20210113
  Serious: Yes (Other)
  Sender: FDA-Public Use
  Company Number: JP-GUERBET-JP-20200141

PATIENT
  Age: 8 Decade
  Sex: Female

DRUGS (2)
  1. LIPIODOL [Suspect]
     Active Substance: ETHIODIZED OIL
     Indication: BRONCHIAL ARTERY EMBOLISATION
     Route: 013
     Dates: start: 20190816
  2. N-BUTYL CYANOACRYLATE [Concomitant]
     Active Substance: UNSPECIFIED INGREDIENT
     Indication: BRONCHIAL ARTERY EMBOLISATION
     Route: 013
     Dates: start: 20190816

REACTIONS (4)
  - Diaphragmatic paralysis [Recovered/Resolved]
  - Respiratory failure [Recovered/Resolved]
  - Restrictive pulmonary disease [Recovered/Resolved]
  - Product use in unapproved indication [Recovered/Resolved]

NARRATIVE: CASE EVENT DATE: 20190816
